FAERS Safety Report 9144060 (Version 2)
Quarter: 2013Q1

REPORT INFORMATION
  Report Type: Spontaneous
  Country: JP (occurrence: JP)
  Receive Date: 20130306
  Receipt Date: 20130327
  Transmission Date: 20140127
  Serious: Yes (Death, Life-Threatening, Hospitalization)
  Sender: FDA-Public Use
  Company Number: JP-EISAI INC-E7389-03609-SPO-JP

PATIENT
  Age: 56 Year
  Sex: Female
  Weight: 43 kg

DRUGS (7)
  1. HALAVEN [Suspect]
     Indication: BREAST CANCER RECURRENT
     Route: 041
     Dates: start: 20121220, end: 20130116
  2. RINDERON-VG [Concomitant]
     Indication: METASTASES TO MENINGES
     Route: 048
     Dates: start: 20121217, end: 20130223
  3. ISOBIDE [Concomitant]
     Indication: DIURETIC THERAPY
     Route: 048
     Dates: start: 20121214, end: 20130223
  4. TAKEPRON [Concomitant]
     Indication: GASTRITIS
     Route: 048
     Dates: start: 201201, end: 20130223
  5. MEROPEN [Concomitant]
     Indication: PYREXIA
     Route: 042
  6. BAKTAR [Concomitant]
     Indication: PYREXIA
  7. HACHIAZULE [Concomitant]
     Indication: STOMATITIS
     Dates: start: 20121221, end: 20130223

REACTIONS (3)
  - Interstitial lung disease [Recovered/Resolved]
  - Malignant neoplasm progression [Fatal]
  - Febrile neutropenia [Recovered/Resolved]
